FAERS Safety Report 6408229-8 (Version None)
Quarter: 2009Q4

REPORT INFORMATION
  Report Type: 
  Country: None (occurrence: None)
  Receive Date: 20091021
  Receipt Date: 20091008
  Transmission Date: 20100525
  Serious: Yes (Other)
  Sender: FDA-Public Use
  Company Number: US-PFIZER INC-2009281196

PATIENT
  Sex: Female
  Weight: 53.07 kg

DRUGS (2)
  1. MEDROL [Suspect]
     Indication: EAR PAIN
     Dosage: UNK
     Route: 048
     Dates: start: 20090724, end: 20090724
  2. SYNTHROID [Concomitant]
     Dosage: 88 UG, 1X/DAY FOR 40 YRS.
     Route: 048

REACTIONS (1)
  - VOMITING [None]
